FAERS Safety Report 17218474 (Version 7)
Quarter: 2022Q2

REPORT INFORMATION
  Report Type: Other
  Country: GB (occurrence: GB)
  Receive Date: 20191231
  Receipt Date: 20220520
  Transmission Date: 20220721
  Serious: Yes (Other)
  Sender: FDA-Public Use
  Company Number: None

PATIENT
  Sex: Male

DRUGS (34)
  1. AMLODIPINE [Suspect]
     Active Substance: AMLODIPINE BESYLATE
     Indication: Product used for unknown indication
     Dosage: UNK
     Route: 065
  2. AMLODIPINE [Suspect]
     Active Substance: AMLODIPINE BESYLATE
     Dosage: UNK
     Route: 065
  3. AMLODIPINE [Suspect]
     Active Substance: AMLODIPINE BESYLATE
     Dosage: UNK
     Route: 065
  4. LOSARTAN [Suspect]
     Active Substance: LOSARTAN
     Indication: Cardiac disorder
     Dosage: 50 MILLIGRAM, QD, TABLET
     Route: 065
  5. LOSARTAN [Suspect]
     Active Substance: LOSARTAN
     Dosage: 50 MILLIGRAM, QD (ONCE PER DAY)
     Route: 065
  6. LOSARTAN [Suspect]
     Active Substance: LOSARTAN
     Dosage: 50 MILLIGRAM, UNK, TABLET
     Route: 065
  7. LOSARTAN [Suspect]
     Active Substance: LOSARTAN
     Dosage: 50 MILLIGRAM, UNK, TABLET
     Route: 065
  8. METFORMIN [Suspect]
     Active Substance: METFORMIN HYDROCHLORIDE
     Indication: Diabetes mellitus
     Dosage: 1000 MILLIGRAM, QD, (ONCE A DAY)
     Route: 048
  9. METFORMIN [Suspect]
     Active Substance: METFORMIN HYDROCHLORIDE
     Dosage: 1000 MILLIGRAM, QD
     Route: 048
  10. ENTYVIO [Suspect]
     Active Substance: VEDOLIZUMAB
     Indication: Inflammatory bowel disease
     Dosage: 300 MILLIGRAM, UNK, POWDER FOR SOLUTION FOR INFUSION
     Route: 042
     Dates: start: 20160808, end: 20170817
  11. ENTYVIO [Suspect]
     Active Substance: VEDOLIZUMAB
     Dosage: 300 MILLIGRAM, UNK, POWDER FOR SOLUTION FOR INFUSION
     Route: 042
     Dates: start: 20160808, end: 20170817
  12. ENTYVIO [Suspect]
     Active Substance: VEDOLIZUMAB
     Dosage: UNK (POWDER FOR SOLUTION FOR INFUSION)
     Route: 042
     Dates: start: 20160808, end: 20170817
  13. ENTYVIO [Suspect]
     Active Substance: VEDOLIZUMAB
     Dosage: 300 MILLIGRAM, UNK
     Route: 042
     Dates: start: 20160808, end: 20170817
  14. CHOLECALCIFEROL [Suspect]
     Active Substance: CHOLECALCIFEROL
     Indication: Vitamin D deficiency
     Dosage: 15 MILLIGRAM, UNK
     Route: 048
  15. CHOLECALCIFEROL [Suspect]
     Active Substance: CHOLECALCIFEROL
     Dosage: UNK
     Route: 048
  16. CHOLECALCIFEROL [Suspect]
     Active Substance: CHOLECALCIFEROL
     Dosage: UNK
     Route: 048
  17. CHOLECALCIFEROL [Suspect]
     Active Substance: CHOLECALCIFEROL
     Dosage: 15 MILLIGRAM, UNK
     Route: 048
  18. CHOLECALCIFEROL [Suspect]
     Active Substance: CHOLECALCIFEROL
     Dosage: UNK
     Route: 048
  19. CHOLECALCIFEROL [Suspect]
     Active Substance: CHOLECALCIFEROL
     Dosage: UNK
     Route: 048
  20. ATORVASTATIN [Suspect]
     Active Substance: ATORVASTATIN
     Indication: Blood cholesterol abnormal
     Dosage: 40 MILLIGRAM, UNK
     Route: 048
  21. ATORVASTATIN [Suspect]
     Active Substance: ATORVASTATIN
     Dosage: 40 MILLIGRAM, UNK, FILM COATED TABLET
     Route: 048
  22. RIVAROXABAN [Suspect]
     Active Substance: RIVAROXABAN
     Indication: Transient ischaemic attack
     Dosage: 20 MILLIGRAM, QD (ONCE PER DAY) (FILM-COATED TABLET)
     Route: 048
     Dates: start: 20151019
  23. RIVAROXABAN [Suspect]
     Active Substance: RIVAROXABAN
     Dosage: UNK
     Route: 065
  24. LANSOPRAZOLE [Suspect]
     Active Substance: LANSOPRAZOLE
     Indication: Gastrointestinal disorder
     Dosage: 15 MILLIGRAM, BID
     Route: 048
  25. LANSOPRAZOLE [Suspect]
     Active Substance: LANSOPRAZOLE
     Indication: Inflammatory bowel disease
     Dosage: 30 MILLIGRAM QD (ONCE PER DAY) (15 MILLIGRAM, BID)
     Route: 048
  26. FUSIDATE SODIUM\HYDROCORTISONE ACETATE [Concomitant]
     Active Substance: FUSIDATE SODIUM\HYDROCORTISONE ACETATE
     Indication: Skin lesion
     Dosage: UNK
     Route: 061
  27. BISOPROLOL [Concomitant]
     Active Substance: BISOPROLOL
     Indication: Cardiac disorder
     Dosage: 1.25 MILLIGRAM, QD, ONCE PER  DAY
     Route: 048
  28. BISOPROLOL [Concomitant]
     Active Substance: BISOPROLOL
     Dosage: 125 MILLIGRAM, QD, ONCE PER DAY
     Route: 048
  29. BISOPROLOL [Concomitant]
     Active Substance: BISOPROLOL
     Dosage: 1.25 MILLIGRAM, UNK
     Route: 048
  30. BISOPROLOL [Concomitant]
     Active Substance: BISOPROLOL
     Dosage: 1.25 MILLIGRAM, UNK
     Route: 048
  31. FLUOROURACIL [Concomitant]
     Active Substance: FLUOROURACIL
     Indication: Skin lesion
     Dosage: UNK
     Route: 061
  32. FLUOROURACIL [Concomitant]
     Active Substance: FLUOROURACIL
     Indication: Inflammatory bowel disease
     Dosage: UNK
     Route: 061
  33. FLUOROURACIL [Concomitant]
     Active Substance: FLUOROURACIL
     Dosage: UNK
     Route: 061
  34. FLUOROURACIL [Concomitant]
     Active Substance: FLUOROURACIL
     Dosage: UNK
     Route: 061
     Dates: start: 20160808

REACTIONS (4)
  - Basal cell carcinoma [Recovered/Resolved]
  - Basal cell carcinoma [Recovered/Resolved]
  - Skin lesion [Recovered/Resolved]
  - Condition aggravated [Recovered/Resolved]

NARRATIVE: CASE EVENT DATE: 20171101
